FAERS Safety Report 14529255 (Version 3)
Quarter: 2021Q3

REPORT INFORMATION
  Report Type: Other
  Country: US (occurrence: US)
  Receive Date: 20180214
  Receipt Date: 20210826
  Transmission Date: 20211014
  Serious: Yes (Other)
  Sender: FDA-Public Use
  Company Number: US-ROCHE-2070197

PATIENT
  Age: 69 Year
  Sex: Male
  Weight: 86.26 kg

DRUGS (6)
  1. SIMVASTATIN. [Concomitant]
     Active Substance: SIMVASTATIN
     Indication: BLOOD CHOLESTEROL INCREASED
     Route: 048
  2. GABAPENTIN. [Concomitant]
     Active Substance: GABAPENTIN
     Indication: PARAESTHESIA
     Route: 048
  3. ATENOLOL. [Concomitant]
     Active Substance: ATENOLOL
     Indication: HYPERTENSION
     Route: 048
  4. BABY ASPIRIN [Concomitant]
     Active Substance: ASPIRIN
     Route: 048
  5. OCREVUS [Suspect]
     Active Substance: OCRELIZUMAB
     Indication: RELAPSING MULTIPLE SCLEROSIS
     Route: 042
     Dates: start: 2017, end: 20210309
  6. XARELTO [Concomitant]
     Active Substance: RIVAROXABAN
     Route: 048

REACTIONS (2)
  - Urinary tract infection [Recovered/Resolved]
  - Cystitis [Not Recovered/Not Resolved]

NARRATIVE: CASE EVENT DATE: 201801
